APPROVED DRUG PRODUCT: METHOCARBAMOL
Active Ingredient: METHOCARBAMOL
Strength: 500MG
Dosage Form/Route: TABLET;ORAL
Application: A087660 | Product #001
Applicant: ASCOT HOSP PHARMACEUTICALS INC DIV TRAVENOL LABORATORIES INC
Approved: Oct 27, 1982 | RLD: No | RS: No | Type: DISCN